FAERS Safety Report 13339431 (Version 2)
Quarter: 2017Q2

REPORT INFORMATION
  Report Type: Spontaneous
  Country: US (occurrence: US)
  Receive Date: 20170315
  Receipt Date: 20170608
  Transmission Date: 20170830
  Serious: Yes (Other)
  Sender: FDA-Public Use
  Company Number: US-TEVA-749125USA

PATIENT
  Sex: Female

DRUGS (2)
  1. QUETIAPINE FUMARATE. [Suspect]
     Active Substance: QUETIAPINE FUMARATE
     Dosage: 200 MG IN THE MORNING AND 600 MG AT NIGHT
     Route: 065
  2. QUETIAPINE. [Concomitant]
     Active Substance: QUETIAPINE
     Dosage: AT NIGHT
     Route: 065
     Dates: start: 2010

REACTIONS (8)
  - Restlessness [Unknown]
  - Dry mouth [Unknown]
  - Somnolence [Unknown]
  - Diaphragmatic paralysis [Unknown]
  - Tardive dyskinesia [Unknown]
  - Disturbance in attention [Unknown]
  - Sleep disorder [Unknown]
  - Cardiac discomfort [Unknown]
